FAERS Safety Report 21766706 (Version 3)
Quarter: 2023Q1

REPORT INFORMATION
  Report Type: Spontaneous
  Country: CA (occurrence: CA)
  Receive Date: 20221222
  Receipt Date: 20230203
  Transmission Date: 20230418
  Serious: Yes (Other)
  Sender: FDA-Public Use
  Company Number: CA-PFIZER INC-202201384634

PATIENT
  Age: 44 Year
  Sex: Female

DRUGS (2)
  1. METHOTREXATE SODIUM [Suspect]
     Active Substance: METHOTREXATE SODIUM
     Dosage: 25 MG
     Route: 058
     Dates: start: 202203
  2. ENTYVIO [Concomitant]
     Active Substance: VEDOLIZUMAB
     Indication: Crohn^s disease
     Dosage: EVERY 4 WEEK
     Dates: start: 2021

REACTIONS (23)
  - Haematochezia [Unknown]
  - Abdominal pain [Unknown]
  - Drug ineffective [Unknown]
  - Product use issue [Unknown]
  - Malaise [Unknown]
  - Defaecation urgency [Unknown]
  - Mucous stools [Unknown]
  - Flatulence [Unknown]
  - Wound [Unknown]
  - Nausea [Unknown]
  - Dizziness [Unknown]
  - Decreased appetite [Unknown]
  - Vomiting [Unknown]
  - Burning sensation [Unknown]
  - Oesophageal spasm [Unknown]
  - Oesophageal pain [Unknown]
  - Dysphagia [Unknown]
  - Chest pain [Unknown]
  - Weight decreased [Unknown]
  - Dyspnoea [Unknown]
  - Atelectasis [Recovered/Resolved]
  - Pain [Recovered/Resolved]
  - Condition aggravated [Unknown]

NARRATIVE: CASE EVENT DATE: 20221101
